FAERS Safety Report 25699926 (Version 1)
Quarter: 2025Q3

REPORT INFORMATION
  Report Type: Spontaneous
  Country: US (occurrence: None)
  Receive Date: 20250818
  Receipt Date: 20250818
  Transmission Date: 20251021
  Serious: Yes (Life-Threatening, Hospitalization)
  Sender: FDA-CTU
  Company Number: None

PATIENT
  Age: 30 Year
  Sex: Female

DRUGS (4)
  1. MIFEPRISTONE [Suspect]
     Active Substance: MIFEPRISTONE
     Indication: Pregnancy
  2. MISOPROSTOL [Suspect]
     Active Substance: MISOPROSTOL
  3. METOPROLOL [Concomitant]
     Active Substance: METOPROLOL
  4. Implanted loop recorder [Concomitant]

REACTIONS (2)
  - Pulmonary embolism [None]
  - Maternal exposure during pregnancy [None]

NARRATIVE: CASE EVENT DATE: 20220401
